FAERS Safety Report 9660989 (Version 1)
Quarter: 2013Q4

REPORT INFORMATION
  Report Type: Spontaneous
  Country: US (occurrence: US)
  Receive Date: 20131031
  Receipt Date: 20131031
  Transmission Date: 20140711
  Serious: Yes (Death)
  Sender: FDA-Public Use
  Company Number: US-B.I. PHARMACEUTICALS,INC./RIDGEFIELD-2013-BI-35034BP

PATIENT
  Age: 76 Year
  Sex: Male

DRUGS (10)
  1. SPIRIVA [Suspect]
     Route: 055
     Dates: start: 201306
  2. DALIRESP [Concomitant]
     Route: 048
  3. PANTOPRAZOLE [Concomitant]
     Dosage: FORMULATUION : CAPLET
     Route: 048
  4. DIGOXIN [Concomitant]
     Route: 048
  5. HYDROCODONE/ACETAMINOPHEN [Concomitant]
     Route: 048
  6. VERAPAMIL [Concomitant]
     Route: 048
  7. TEMAZEPAM [Concomitant]
     Route: 048
  8. METOPROLOL [Concomitant]
     Route: 048
  9. NOVALOG [Concomitant]
     Dosage: FORMULATION : SUBCUTANEOUS
     Route: 058
  10. POTASSIUM [Concomitant]
     Route: 048

REACTIONS (1)
  - Death [Fatal]
